FAERS Safety Report 24339846 (Version 1)
Quarter: 2024Q3

REPORT INFORMATION
  Report Type: Spontaneous
  Country: US (occurrence: US)
  Receive Date: 20240919
  Receipt Date: 20240919
  Transmission Date: 20241017
  Serious: No
  Sender: PFIZER
  Company Number: US-PFIZER INC-202300313259

PATIENT
  Age: 62 Year
  Sex: Female

DRUGS (1)
  1. LITFULO [Suspect]
     Active Substance: RITLECITINIB TOSYLATE
     Indication: Alopecia universalis
     Dosage: 50 MG, 1X/DAY FOR 3 MONTHS
     Route: 048
     Dates: start: 202309

REACTIONS (2)
  - Rash papular [Unknown]
  - Haemangioma [Unknown]
